FAERS Safety Report 7731726-X (Version None)
Quarter: 2011Q3

REPORT INFORMATION
  Report Type: 
  Country: None (occurrence: None)
  Receive Date: 20110906
  Receipt Date: 20110825
  Transmission Date: 20111222
  Serious: Yes (Other)
  Sender: FDA-Public Use
  Company Number: PHHY2011NZ43555

PATIENT
  Sex: Female
  Weight: 60 kg

DRUGS (1)
  1. ESTRADERM [Suspect]
     Dosage: 100, TWICE A WEEK
     Route: 062
     Dates: start: 20110330

REACTIONS (9)
  - DRUG INEFFECTIVE [None]
  - ANXIETY [None]
  - UNDERDOSE [None]
  - IRRITABILITY [None]
  - PANIC DISORDER [None]
  - HOT FLUSH [None]
  - QUALITY OF LIFE DECREASED [None]
  - MENOPAUSAL SYMPTOMS [None]
  - INSOMNIA [None]
